FAERS Safety Report 16416281 (Version 9)
Quarter: 2019Q3

REPORT INFORMATION
  Report Type: Report from Study
  Country: US (occurrence: US)
  Receive Date: 20190611
  Receipt Date: 20190909
  Transmission Date: 20191004
  Serious: Yes (Hospitalization, Other)
  Sender: FDA-Public Use
  Company Number: US-TESARO-2019-TSO01702-US

PATIENT
  Age: 46 Year
  Sex: Female
  Weight: 56 kg

DRUGS (5)
  1. FIORICET [Concomitant]
     Active Substance: ACETAMINOPHEN\BUTALBITAL\CAFFEINE
     Indication: PRODUCT USED FOR UNKNOWN INDICATION
     Dosage: 50-325-40 MG
     Route: 048
  2. ZEJULA [Suspect]
     Active Substance: NIRAPARIB
     Indication: OVARIAN CANCER
     Dosage: 300 MG, QD
     Route: 048
     Dates: start: 20190420, end: 20190518
  3. TYLENOL [Concomitant]
     Active Substance: ACETAMINOPHEN
     Indication: PRODUCT USED FOR UNKNOWN INDICATION
     Dosage: UNK
  4. ZOFRAN [Concomitant]
     Active Substance: ONDANSETRON HYDROCHLORIDE
     Indication: PRODUCT USED FOR UNKNOWN INDICATION
     Dosage: 8 MG, EVERY 8 HOURS AS NEEDED
  5. ZEJULA [Suspect]
     Active Substance: NIRAPARIB
     Dosage: 100 MG, QD
     Route: 048
     Dates: start: 20190719, end: 20190801

REACTIONS (21)
  - Adverse event [Recovered/Resolved]
  - Vomiting [Recovered/Resolved]
  - Drug titration error [Unknown]
  - Pancytopenia [Unknown]
  - Neutrophil count decreased [Recovered/Resolved]
  - Migraine [Recovered/Resolved]
  - Nausea [Unknown]
  - Thrombocytopenia [Recovered/Resolved]
  - Constipation [Unknown]
  - White blood cell count decreased [Recovered/Resolved]
  - Endodontic procedure [Recovered/Resolved]
  - Blood bilirubin increased [Unknown]
  - Drug intolerance [Recovered/Resolved]
  - Neutrophil count decreased [Recovered/Resolved]
  - Thrombocytopenia [Recovered/Resolved]
  - Thrombocytopenia [Recovered/Resolved]
  - Headache [Recovered/Resolved]
  - Haemoglobin decreased [Unknown]
  - Emotional distress [Recovered/Resolved]
  - White blood cell count decreased [Recovered/Resolved]
  - Haematocrit decreased [Unknown]

NARRATIVE: CASE EVENT DATE: 201905
